FAERS Safety Report 6166480-9 (Version None)
Quarter: 2009Q2

REPORT INFORMATION
  Report Type: 
  Country: None (occurrence: None)
  Receive Date: 20090422
  Receipt Date: 20090414
  Transmission Date: 20091009
  Serious: No
  Sender: FDA-Public Use
  Company Number: ADE# 09-054

PATIENT
  Sex: Female
  Weight: 79.3795 kg

DRUGS (3)
  1. METOPROLOL TARTRATE [Suspect]
     Indication: HYPERTENSION
     Dosage: ONE TABLET TWICE DAILY
  2. PLAVIX [Concomitant]
  3. TORSEMIDE [Concomitant]

REACTIONS (2)
  - ELECTROCARDIOGRAM ABNORMAL [None]
  - HEART RATE DECREASED [None]
